FAERS Safety Report 13165778 (Version 1)
Quarter: 2017Q1

REPORT INFORMATION
  Report Type: Spontaneous
  Country: US (occurrence: US)
  Receive Date: 20170126
  Receipt Date: 20170126
  Transmission Date: 20170428
  Serious: Yes (Life-Threatening)
  Sender: FDA-Public Use
  Company Number: None

PATIENT
  Age: 51 Year
  Sex: Male
  Weight: 77.7 kg

DRUGS (2)
  1. LISINOPRIL. [Suspect]
     Active Substance: LISINOPRIL
     Indication: HYPERTENSION
     Route: 048
     Dates: start: 20110622, end: 20130325
  2. ETODOLAC. [Suspect]
     Active Substance: ETODOLAC
     Indication: PAIN
     Route: 048
     Dates: start: 20110622, end: 20130324

REACTIONS (10)
  - Gait disturbance [None]
  - Acute kidney injury [None]
  - Bradykinesia [None]
  - Dysarthria [None]
  - Somnolence [None]
  - Blood creatinine increased [None]
  - Blood creatine phosphokinase increased [None]
  - Confusional state [None]
  - Slow speech [None]
  - Spinal osteoarthritis [None]

NARRATIVE: CASE EVENT DATE: 20130324
